FAERS Safety Report 10945094 (Version 6)
Quarter: 2015Q2

REPORT INFORMATION
  Report Type: Spontaneous
  Country: US (occurrence: US)
  Receive Date: 20150323
  Receipt Date: 20150414
  Transmission Date: 20150821
  Serious: Yes (Hospitalization)
  Sender: FDA-Public Use
  Company Number: US-JNJFOC-20150310158

PATIENT
  Age: 75 Year
  Sex: Male

DRUGS (13)
  1. COREG [Concomitant]
     Active Substance: CARVEDILOL
     Route: 065
  2. ALTACE [Concomitant]
     Active Substance: RAMIPRIL
     Route: 065
  3. FLOMAX [Concomitant]
     Active Substance: TAMSULOSIN HYDROCHLORIDE
     Route: 065
  4. LEVOTHYROXINE [Concomitant]
     Active Substance: LEVOTHYROXINE
     Route: 065
  5. XYZAL [Concomitant]
     Active Substance: LEVOCETIRIZINE DIHYDROCHLORIDE
     Route: 065
  6. SONATA [Concomitant]
     Active Substance: ZALEPLON
     Route: 065
  7. XARELTO [Suspect]
     Active Substance: RIVAROXABAN
     Indication: CEREBROVASCULAR ACCIDENT PROPHYLAXIS
     Route: 048
     Dates: start: 201409
  8. LIPITOR [Concomitant]
     Active Substance: ATORVASTATIN CALCIUM
     Route: 065
  9. KCL [Concomitant]
     Active Substance: POTASSIUM CHLORIDE
     Route: 065
  10. XARELTO [Suspect]
     Active Substance: RIVAROXABAN
     Indication: ATRIAL FIBRILLATION
     Route: 048
     Dates: start: 201409
  11. ASPIRIN. [Concomitant]
     Active Substance: ASPIRIN
     Route: 065
  12. LASIX [Concomitant]
     Active Substance: FUROSEMIDE
     Route: 065
  13. FLOMAX [Concomitant]
     Active Substance: TAMSULOSIN HYDROCHLORIDE
     Route: 065

REACTIONS (2)
  - Cerebral haematoma [Unknown]
  - Bladder neoplasm [Recovered/Resolved]
